APPROVED DRUG PRODUCT: T-STAT
Active Ingredient: ERYTHROMYCIN
Strength: 2%
Dosage Form/Route: SWAB;TOPICAL
Application: A062748 | Product #001
Applicant: WESTWOOD SQUIBB PHARMACEUTICALS INC
Approved: Jul 23, 1987 | RLD: No | RS: No | Type: DISCN